FAERS Safety Report 6683839-1 (Version None)
Quarter: 2010Q2

REPORT INFORMATION
  Report Type: 
  Country: None (occurrence: None)
  Receive Date: 20100416
  Receipt Date: 20100405
  Transmission Date: 20101027
  Serious: No
  Sender: FDA-Public Use
  Company Number: US-BAYER-201017254NA

PATIENT
  Age: 34 Year
  Sex: Female

DRUGS (2)
  1. MIRENA [Suspect]
     Indication: CONTRACEPTION
     Route: 015
     Dates: start: 20050101, end: 20100122
  2. MIRENA [Suspect]
     Route: 015
     Dates: start: 20100101

REACTIONS (5)
  - CONSTIPATION [None]
  - FATIGUE [None]
  - MEDICAL DEVICE COMPLICATION [None]
  - NAUSEA [None]
  - PREGNANCY WITH CONTRACEPTIVE DEVICE [None]
